FAERS Safety Report 8716272 (Version 3)
Quarter: 2016Q3

REPORT INFORMATION
  Report Type: Spontaneous
  Country: US (occurrence: US)
  Receive Date: 20120810
  Receipt Date: 20160808
  Transmission Date: 20161109
  Serious: Yes (Hospitalization, Disabling, Other)
  Sender: FDA-Public Use
  Company Number: US-MERCK-1208USA000749

PATIENT
  Sex: Female
  Weight: 76.19 kg

DRUGS (3)
  1. FOSAMAX [Suspect]
     Active Substance: ALENDRONATE SODIUM
     Indication: OSTEOPOROSIS
     Dosage: 70 MG, QW
     Route: 048
     Dates: start: 20040108, end: 200709
  2. ALENDRONATE SODIUM. [Suspect]
     Active Substance: ALENDRONATE SODIUM
     Indication: OSTEOPOROSIS
     Dosage: 70 MG, QW
     Route: 048
     Dates: start: 200804, end: 201009
  3. HYDROCHLOROTHIAZIDE. [Concomitant]
     Active Substance: HYDROCHLOROTHIAZIDE
     Indication: NEPHROLITHIASIS
     Dosage: 50 MG, UNK
     Dates: start: 1990

REACTIONS (14)
  - High density lipoprotein decreased [Unknown]
  - Pollakiuria [Unknown]
  - Device fastener issue [Unknown]
  - Hypokalaemia [Unknown]
  - Rosacea [Unknown]
  - Fatigue [Unknown]
  - Intramedullary rod insertion [Unknown]
  - Abdominal pain [Unknown]
  - Ear infection [Unknown]
  - Faeces pale [Unknown]
  - Soft tissue disorder [Unknown]
  - Insomnia [Unknown]
  - Osteopenia [Unknown]
  - Femur fracture [Unknown]

NARRATIVE: CASE EVENT DATE: 2006
